FAERS Safety Report 9148389 (Version 1)
Quarter: 2013Q1

REPORT INFORMATION
  Report Type: Spontaneous
  Country: AU (occurrence: AU)
  Receive Date: 20130308
  Receipt Date: 20130308
  Transmission Date: 20140127
  Serious: Yes (Hospitalization, Disabling, Other)
  Sender: FDA-Public Use
  Company Number: PHHY2008AU27072

PATIENT
  Sex: Female
  Weight: 75 kg

DRUGS (12)
  1. GLIVEC [Suspect]
     Indication: CHRONIC MYELOID LEUKAEMIA
     Dosage: 400 MG, UNK
     Route: 048
     Dates: start: 20010110
  2. GLIVEC [Suspect]
     Dosage: 400 MG, DAILY
     Route: 048
     Dates: start: 200703, end: 200809
  3. GLIVEC [Suspect]
     Dosage: 200 MG, DAILY
     Route: 048
  4. GLIVEC [Suspect]
     Dosage: 100 MG, DAILY
     Route: 048
  5. LIPITOR [Concomitant]
     Indication: HYPERCHOLESTEROLAEMIA
     Dosage: 20 MG, DAILY
     Route: 048
  6. TENSIG [Concomitant]
     Indication: HYPERTENSION
     Dosage: 50 MG, DAILY
     Route: 048
  7. PHYSIOTENS [Concomitant]
     Indication: HYPERTENSION
     Dosage: 50 MG, DAILY
     Route: 048
  8. QUINATE [Concomitant]
     Dosage: 300 MG, PRN
     Route: 048
     Dates: start: 200703
  9. AVANZA [Concomitant]
  10. ROCALTROL [Concomitant]
  11. CALTRATE [Concomitant]
  12. ASPIRIN [Concomitant]
     Dosage: UNK UKN, UNK

REACTIONS (22)
  - Atrial fibrillation [Unknown]
  - Asthma [Unknown]
  - Fluid retention [Not Recovered/Not Resolved]
  - Periorbital oedema [Not Recovered/Not Resolved]
  - Tinnitus [Recovering/Resolving]
  - Full blood count increased [Unknown]
  - Excoriation [Not Recovered/Not Resolved]
  - Skin ulcer [Not Recovered/Not Resolved]
  - Local swelling [Not Recovered/Not Resolved]
  - Skin atrophy [Not Recovered/Not Resolved]
  - Nausea [Recovered/Resolved]
  - Muscle spasms [Recovered/Resolved]
  - Alopecia [Unknown]
  - Nail ridging [Unknown]
  - Hypersomnia [Unknown]
  - Eye swelling [Recovered/Resolved]
  - Rash [Recovered/Resolved]
  - Weight decreased [Unknown]
  - Dyspepsia [Unknown]
  - Heart rate increased [Unknown]
  - Headache [Unknown]
  - Eating disorder [Unknown]
